FAERS Safety Report 8133125-8 (Version None)
Quarter: 2012Q1

REPORT INFORMATION
  Report Type: 
  Country: None (occurrence: None)
  Receive Date: 20120213
  Receipt Date: 20120210
  Transmission Date: 20120608
  Serious: Yes (Death, Hospitalization)
  Sender: FDA-Public Use
  Company Number: US-B.I. PHARMACEUTICALS,INC./RIDGEFIELD-2012-BP-02711BP

PATIENT
  Age: 72 Year
  Sex: Male

DRUGS (1)
  1. PRADAXA [Suspect]
     Indication: ATRIAL FIBRILLATION
     Dosage: 150 MG
     Route: 048
     Dates: start: 20111101, end: 20120209

REACTIONS (5)
  - DEEP VEIN THROMBOSIS [None]
  - CARDIAC ARREST [None]
  - THROMBOSIS [None]
  - INTRACARDIAC THROMBUS [None]
  - AORTIC THROMBOSIS [None]
